FAERS Safety Report 25594961 (Version 2)
Quarter: 2025Q3

REPORT INFORMATION
  Report Type: Spontaneous
  Country: TW (occurrence: TW)
  Receive Date: 20250723
  Receipt Date: 20250806
  Transmission Date: 20251021
  Serious: Yes (Other)
  Sender: EXELIXIS
  Company Number: TW-IPSEN Group, Research and Development-2025-17256

PATIENT
  Age: 26 Year
  Sex: Female

DRUGS (1)
  1. CABOMETYX [Suspect]
     Active Substance: CABOZANTINIB S-MALATE
     Indication: Renal cell carcinoma
     Dates: end: 202507

REACTIONS (1)
  - Cardiac failure [Not Recovered/Not Resolved]
